FAERS Safety Report 25603615 (Version 2)
Quarter: 2025Q4

REPORT INFORMATION
  Report Type: Spontaneous
  Country: EU (occurrence: EU)
  Receive Date: 20250725
  Receipt Date: 20251027
  Transmission Date: 20260118
  Serious: No
  Sender: JOHNSON AND JOHNSON
  Company Number: EU-JNJFOC-20250724530

PATIENT
  Age: 57 Year
  Sex: Female

DRUGS (5)
  1. TREMFYA [Suspect]
     Active Substance: GUSELKUMAB
     Indication: Psoriasis
     Route: 058
     Dates: start: 20240807, end: 20250716
  2. ATORVASTATIN [Concomitant]
     Active Substance: ATORVASTATIN
     Indication: Product used for unknown indication
  3. RamiLich comp 5 mg / 12,5 mg [Concomitant]
     Indication: Product used for unknown indication
  4. Bisolich 2,5 mg [Concomitant]
     Indication: Product used for unknown indication
  5. Lercanidipin-Omniapharm 10 mg [Concomitant]
     Indication: Product used for unknown indication

REACTIONS (2)
  - Liver function test increased [Not Recovered/Not Resolved]
  - Blood triglycerides increased [Unknown]

NARRATIVE: CASE EVENT DATE: 20250430
